FAERS Safety Report 17353842 (Version 1)
Quarter: 2020Q1

REPORT INFORMATION
  Report Type: Spontaneous
  Country: AU (occurrence: AU)
  Receive Date: 20200130
  Receipt Date: 20200130
  Transmission Date: 20200409
  Serious: Yes (Other)
  Sender: FDA-Public Use
  Company Number: None

PATIENT
  Age: 37 Year
  Sex: Female
  Weight: 85 kg

DRUGS (3)
  1. THYROXINE 150MG [Concomitant]
  2. NIL [Concomitant]
  3. TRAMADOL. [Suspect]
     Active Substance: TRAMADOL
     Indication: SPINAL FRACTURE

REACTIONS (4)
  - Anger [None]
  - Drug withdrawal syndrome [None]
  - Drug dependence [None]
  - Homicidal ideation [None]

NARRATIVE: CASE EVENT DATE: 20140101
